FAERS Safety Report 7562773-9 (Version None)
Quarter: 2011Q2

REPORT INFORMATION
  Report Type: 
  Country: None (occurrence: None)
  Receive Date: 20110621
  Receipt Date: 20110621
  Transmission Date: 20111010
  Serious: Yes (Hospitalization)
  Sender: FDA-Public Use
  Company Number: None

PATIENT
  Age: 57 Year
  Sex: Female
  Weight: 69.91 kg

DRUGS (2)
  1. ERLOTINIB HYDROCHLORIDE [Suspect]
     Indication: PANCREATIC CARCINOMA
     Dosage: 100 MG, DAILY, ORAL
     Route: 048
     Dates: start: 20110613
  2. SORAFENIB / BAYER [Suspect]
     Indication: PANCREATIC CARCINOMA
     Dosage: 400 MG, DAILY, ORAL
     Route: 048
     Dates: start: 20110210

REACTIONS (1)
  - HOSPITALISATION [None]
